FAERS Safety Report 21706969 (Version 1)
Quarter: 2022Q4

REPORT INFORMATION
  Report Type: Spontaneous
  Country: US (occurrence: US)
  Receive Date: 20221209
  Receipt Date: 20221209
  Transmission Date: 20230113
  Serious: Yes (Hospitalization, Other)
  Sender: FDA-Public Use
  Company Number: US-PFIZER INC-202201353200

PATIENT
  Age: 80 Year
  Sex: Male
  Weight: 73.71 kg

DRUGS (3)
  1. VYNDAMAX [Suspect]
     Active Substance: TAFAMIDIS
     Indication: Cardiac amyloidosis
     Dosage: 61 MG, 1X/DAY
     Dates: start: 2020
  2. MIDODRINE [Concomitant]
     Active Substance: MIDODRINE
     Dosage: 10 MG
  3. BUMETANIDE [Concomitant]
     Active Substance: BUMETANIDE
     Dosage: UNK

REACTIONS (8)
  - Hypotension [Recovered/Resolved]
  - Fall [Recovered/Resolved]
  - Cardiac failure [Unknown]
  - Burning sensation [Recovered/Resolved]
  - Fatigue [Unknown]
  - Body height decreased [Unknown]
  - Balance disorder [Recovered/Resolved]
  - Platelet count decreased [Unknown]

NARRATIVE: CASE EVENT DATE: 20220101
